FAERS Safety Report 9727155 (Version 1)
Quarter: 2013Q4

REPORT INFORMATION
  Report Type: Spontaneous
  Country: IT (occurrence: IT)
  Receive Date: 20131203
  Receipt Date: 20131203
  Transmission Date: 20140711
  Serious: Yes (Hospitalization)
  Sender: FDA-Public Use
  Company Number: IT-TEVA-446084ISR

PATIENT
  Age: 73 Year
  Sex: Male

DRUGS (8)
  1. FLUOROURACILE TEVA [Suspect]
     Indication: COLON CANCER
     Dosage: 2000 MILLIGRAM DAILY;
     Route: 042
     Dates: start: 20130624, end: 20131028
  2. AVASTIN [Suspect]
     Indication: COLON CANCER
     Dosage: 355 MILLIGRAM DAILY; CONCENTRATE FOR SOLUTION FOR INTRAVENOUS INFUSION
     Route: 042
     Dates: start: 20130624, end: 20131028
  3. CAMPTO [Suspect]
     Indication: COLON CANCER
     Dosage: 236 MILLIGRAM DAILY; CONCENTRATE FOR SOLUTION FOR INTRAVENOUS INFUSION
     Route: 042
     Dates: start: 20130624, end: 20131028
  4. ATROPINA SOLFATO [Concomitant]
     Indication: PREMEDICATION
     Dosage: .25 MILLIGRAM DAILY;
     Route: 042
     Dates: start: 20130626, end: 20131028
  5. BENTELAN [Concomitant]
     Indication: PREMEDICATION
     Dosage: 4 MILLIGRAM DAILY;
     Route: 042
     Dates: start: 20130624, end: 20131028
  6. TORADOL [Concomitant]
     Indication: PREMEDICATION
     Dosage: 30 MILLIGRAM DAILY;
     Route: 042
     Dates: start: 20130624, end: 20131028
  7. RANIDIL [Concomitant]
     Indication: PREMEDICATION
     Dosage: 100 MILLIGRAM DAILY;
     Route: 042
     Dates: start: 20131026, end: 20131028
  8. ALOXI [Concomitant]
     Indication: PREMEDICATION
     Dosage: 250 MICROGRAM DAILY;
     Route: 042
     Dates: start: 20130626, end: 20131028

REACTIONS (1)
  - Febrile neutropenia [Recovering/Resolving]
